FAERS Safety Report 9714233 (Version 2)
Quarter: 2015Q3

REPORT INFORMATION
  Report Type: Spontaneous
  Country: US (occurrence: US)
  Receive Date: 20131126
  Receipt Date: 20150803
  Transmission Date: 20151125
  Serious: No
  Sender: FDA-Public Use
  Company Number: US-GILEAD-2008-0019406

PATIENT
  Age: 64 Year
  Sex: Female
  Weight: 82.1 kg

DRUGS (11)
  1. LETAIRIS [Suspect]
     Active Substance: AMBRISENTAN
     Indication: PULMONARY ARTERIAL HYPERTENSION
     Route: 048
     Dates: start: 20080807
  2. REMERON [Concomitant]
     Active Substance: MIRTAZAPINE
  3. COLACE [Concomitant]
     Active Substance: DOCUSATE SODIUM
  4. TYLENOL EX-STRENGTH [Concomitant]
  5. CALCIUM 500MG +D [Concomitant]
  6. GLIPIZIDE. [Concomitant]
     Active Substance: GLIPIZIDE
  7. METAMUCIL [Concomitant]
     Active Substance: PLANTAGO SEED
  8. ATIVAN [Concomitant]
     Active Substance: LORAZEPAM
  9. MAG CITRATE SOL [Concomitant]
  10. ACCUPRIL [Concomitant]
     Active Substance: QUINAPRIL HYDROCHLORIDE
  11. AMOXIL [Concomitant]
     Active Substance: AMOXICILLIN

REACTIONS (1)
  - Red blood cell count decreased [None]
